FAERS Safety Report 6662567-2 (Version None)
Quarter: 2010Q1

REPORT INFORMATION
  Report Type: 
  Country: None (occurrence: None)
  Receive Date: 20100329
  Receipt Date: 20100311
  Transmission Date: 20100710
  Serious: Yes (Hospitalization, Other)
  Sender: FDA-Public Use
  Company Number: DSA_42835_2010

PATIENT
  Age: 34 Year
  Sex: Female

DRUGS (3)
  1. DILTIAZEM HCL [Suspect]
     Indication: SINUS TACHYCARDIA
     Dosage: (100 MG QD ORAL) ; (200 MG PRN)
     Route: 048
     Dates: start: 20090101, end: 20100211
  2. POLAPREZINC [Concomitant]
  3. OMEPRAZOLE [Concomitant]

REACTIONS (7)
  - ABNORMAL BEHAVIOUR [None]
  - ATRIOVENTRICULAR BLOCK COMPLETE [None]
  - ATRIOVENTRICULAR BLOCK FIRST DEGREE [None]
  - BIPOLAR DISORDER [None]
  - BLOOD PRESSURE DECREASED [None]
  - LOSS OF CONSCIOUSNESS [None]
  - SICK SINUS SYNDROME [None]
